FAERS Safety Report 5519381-0 (Version None)
Quarter: 2007Q4

REPORT INFORMATION
  Report Type: 
  Country: None (occurrence: None)
  Receive Date: 20071116
  Receipt Date: 20071112
  Transmission Date: 20080405
  Serious: Yes (Other)
  Sender: FDA-Public Use
  Company Number: JP-BRISTOL-MYERS SQUIBB COMPANY-13983721

PATIENT
  Age: 71 Year
  Sex: Male

DRUGS (7)
  1. TAXOL [Suspect]
     Indication: GASTRIC CANCER
     Route: 041
     Dates: start: 20070921, end: 20071005
  2. DECADRON [Suspect]
     Indication: PREMEDICATION
     Route: 042
     Dates: end: 20071019
  3. SEROTONE [Suspect]
     Indication: PREMEDICATION
     Route: 042
     Dates: end: 20071019
  4. ZANTAC [Suspect]
     Indication: PREMEDICATION
     Route: 042
     Dates: end: 20071019
  5. VENA [Concomitant]
     Route: 048
  6. FERROMIA [Concomitant]
     Route: 048
  7. ROHYPNOL [Concomitant]
     Route: 048

REACTIONS (4)
  - ABDOMINAL DISTENSION [None]
  - CONSTIPATION [None]
  - FATIGUE [None]
  - SHOCK [None]
